FAERS Safety Report 6837501-2 (Version None)
Quarter: 2010Q3

REPORT INFORMATION
  Report Type: 
  Country: None (occurrence: None)
  Receive Date: 20100713
  Receipt Date: 20070516
  Transmission Date: 20110219
  Serious: No
  Sender: FDA-Public Use
  Company Number: US-PFIZER INC-2007039883

PATIENT
  Sex: Male
  Weight: 94.545 kg

DRUGS (5)
  1. CHANTIX [Suspect]
     Indication: SMOKING CESSATION THERAPY
     Dates: start: 20070502
  2. TOPROL-XL [Concomitant]
  3. PRINIVIL [Concomitant]
  4. LANOXIN [Concomitant]
  5. LIPITOR [Concomitant]

REACTIONS (1)
  - FATIGUE [None]
